FAERS Safety Report 4337187-5 (Version None)
Quarter: 2004Q2

REPORT INFORMATION
  Report Type: 
  Country: None (occurrence: None)
  Receive Date: 20040408
  Receipt Date: 20040326
  Transmission Date: 20050107
  Serious: Yes (Other)
  Sender: FDA-Public Use
  Company Number: HQWYE968813FEB04

PATIENT
  Sex: Male

DRUGS (1)
  1. CEPHORAL (CEFIXIME, TABLET) [Suspect]
     Dates: start: 20040101, end: 20040101

REACTIONS (1)
  - SWOLLEN TONGUE [None]
